APPROVED DRUG PRODUCT: LEVOTHYROXINE SODIUM
Active Ingredient: LEVOTHYROXINE SODIUM
Strength: 200MCG/VIAL
Dosage Form/Route: POWDER;INTRAVENOUS
Application: A205366 | Product #001
Applicant: PH HEALTH LTD
Approved: Dec 7, 2015 | RLD: No | RS: No | Type: DISCN